FAERS Safety Report 5615099-4 (Version None)
Quarter: 2008Q1

REPORT INFORMATION
  Report Type: 
  Country: None (occurrence: None)
  Receive Date: 20080206
  Receipt Date: 20070413
  Transmission Date: 20080703
  Serious: No
  Sender: FDA-Public Use
  Company Number: A0646070A

PATIENT
  Age: 72 Year
  Sex: Male
  Weight: 113.6 kg

DRUGS (3)
  1. ARIXTRA [Suspect]
     Dosage: 2.5MG SINGLE DOSE
     Route: 058
     Dates: start: 20070404, end: 20070404
  2. CEFAZOLIN [Concomitant]
     Indication: ANTIBIOTIC THERAPY
     Dosage: 1G THREE TIMES PER DAY
     Route: 042
     Dates: start: 20070404, end: 20070405
  3. MORPHINE [Concomitant]
     Indication: PAIN
     Route: 042
     Dates: start: 20070404, end: 20070405

REACTIONS (1)
  - PLATELET COUNT DECREASED [None]
